FAERS Safety Report 7415155-4 (Version None)
Quarter: 2011Q2

REPORT INFORMATION
  Report Type: 
  Country: None (occurrence: None)
  Receive Date: 20110414
  Receipt Date: 20110404
  Transmission Date: 20111010
  Serious: Yes (Other)
  Sender: FDA-Public Use
  Company Number: PHHY2011DE14222

PATIENT
  Sex: Male
  Weight: 75 kg

DRUGS (2)
  1. ZACPAC [Interacting]
     Indication: HELICOBACTER INFECTION
     Dosage: 40MG / 1000MG / 500MG
     Route: 048
     Dates: start: 20110208, end: 20110211
  2. TEGRETOL-XR [Suspect]
     Indication: EPILEPSY
     Dosage: 600 MG, UNK
     Route: 048

REACTIONS (4)
  - ABASIA [None]
  - MUSCLE RIGIDITY [None]
  - DIZZINESS [None]
  - PARAPARESIS [None]
